FAERS Safety Report 9361647 (Version 1)
Quarter: 2013Q2

REPORT INFORMATION
  Report Type: Spontaneous
  Country: ES (occurrence: ES)
  Receive Date: 20130621
  Receipt Date: 20130621
  Transmission Date: 20140414
  Serious: Yes (Hospitalization)
  Sender: FDA-Public Use
  Company Number: ES-TEVA-411671ISR

PATIENT
  Age: 75 Year
  Sex: Male

DRUGS (3)
  1. ENALAPRIL [Suspect]
     Dosage: 20 MILLIGRAM DAILY;
     Route: 065
  2. AMLODIPINE [Concomitant]
     Dosage: 5 MILLIGRAM DAILY;
     Route: 065
  3. SIMVASTATIN [Concomitant]
     Dosage: 20 MILLIGRAM DAILY;
     Route: 065

REACTIONS (7)
  - Angioedema [Recovered/Resolved]
  - Salivary gland disorder [Unknown]
  - Dysphagia [Unknown]
  - Leukocytosis [Unknown]
  - Acute phase reaction [Unknown]
  - Dysphonia [Unknown]
  - Swollen tongue [Unknown]
